FAERS Safety Report 19487065 (Version 4)
Quarter: 2022Q1

REPORT INFORMATION
  Report Type: Other
  Country: US (occurrence: None)
  Receive Date: 20210702
  Receipt Date: 20220112
  Transmission Date: 20220423
  Serious: Yes (Other)
  Sender: FDA-Public Use
  Company Number: US-ROCHE-2860319

PATIENT
  Sex: Female
  Weight: 70.370 kg

DRUGS (11)
  1. OCREVUS [Suspect]
     Active Substance: OCRELIZUMAB
     Indication: Relapsing-remitting multiple sclerosis
     Dosage: DOT : 20/OCT/2020, 18/DEC/2018, 03/APR/2020, 03/OCT/2019
     Route: 042
     Dates: start: 2018, end: 202010
  2. OCREVUS [Suspect]
     Active Substance: OCRELIZUMAB
     Indication: Relapsing multiple sclerosis
     Dosage: 600 MG IV EVERY 6 MONTHS
     Route: 042
  3. VALIUM [Suspect]
     Active Substance: DIAZEPAM
     Indication: Anxiety
     Route: 048
  4. PFIZER-BIONTECH COVID-19 VACCINE [Suspect]
     Active Substance: TOZINAMERAN
     Indication: Product used for unknown indication
     Route: 030
     Dates: start: 20210603, end: 20210603
  5. CYMBALTA [Concomitant]
     Active Substance: DULOXETINE HYDROCHLORIDE
     Route: 048
  6. PROTONIX [Concomitant]
     Active Substance: PANTOPRAZOLE SODIUM
     Indication: Gastrooesophageal reflux disease
     Route: 048
  7. DILTIAZEM [Concomitant]
     Active Substance: DILTIAZEM
     Indication: Hypertension
     Route: 048
  8. VITAMIN D3 [Concomitant]
     Active Substance: CHOLECALCIFEROL
  9. MECLIZINE [Concomitant]
     Active Substance: MECLIZINE HYDROCHLORIDE
     Indication: Dizziness
     Route: 048
  10. ZOFRAN [Concomitant]
     Active Substance: ONDANSETRON HYDROCHLORIDE
     Indication: Nausea
     Route: 048
  11. LOPERAMIDE [Concomitant]
     Active Substance: LOPERAMIDE
     Indication: Diarrhoea
     Route: 048
     Dates: start: 2020

REACTIONS (9)
  - Pneumonia [Recovering/Resolving]
  - Fall [Unknown]
  - Foot fracture [Recovered/Resolved]
  - Multiple sclerosis relapse [Unknown]
  - Anxiety [Not Recovered/Not Resolved]
  - Colitis [Not Recovered/Not Resolved]
  - Diarrhoea [Recovering/Resolving]
  - Illness [Not Recovered/Not Resolved]
  - Upper respiratory tract infection [Unknown]

NARRATIVE: CASE EVENT DATE: 20200101
